FAERS Safety Report 24943256 (Version 1)
Quarter: 2025Q1

REPORT INFORMATION
  Report Type: Spontaneous
  Country: US (occurrence: None)
  Receive Date: 20250207
  Receipt Date: 20250207
  Transmission Date: 20250409
  Serious: Yes (Other)
  Sender: FDA-CTU
  Company Number: None

PATIENT
  Age: 34 Year
  Sex: Female
  Weight: 63 kg

DRUGS (1)
  1. AIMOVIG [Suspect]
     Active Substance: ERENUMAB-AOOE
     Route: 030
     Dates: start: 20241214, end: 20250111

REACTIONS (3)
  - Constipation [None]
  - Weight increased [None]
  - Polymenorrhoea [None]

NARRATIVE: CASE EVENT DATE: 20250110
